FAERS Safety Report 7151123-8 (Version None)
Quarter: 2010Q4

REPORT INFORMATION
  Report Type: 
  Country: None (occurrence: None)
  Receive Date: 20101210
  Receipt Date: 20101201
  Transmission Date: 20110411
  Serious: Yes (Hospitalization, Other)
  Sender: FDA-Public Use
  Company Number: GB-PFIZER INC-2010162420

PATIENT
  Age: 15 Year
  Sex: Male

DRUGS (6)
  1. BLINDED *PLACEBO [Suspect]
     Indication: TYPE 1 DIABETES MELLITUS
     Dosage: DOSE NOT GIVEN
     Route: 048
  2. BLINDED ATORVASTATIN CALCIUM [Suspect]
     Indication: TYPE 1 DIABETES MELLITUS
     Dosage: DOSE NOT GIVEN
     Route: 048
  3. BLINDED QUINAPRIL HCL [Suspect]
     Indication: TYPE 1 DIABETES MELLITUS
     Dosage: DOSE NOT GIVEN
     Route: 048
  4. ACTRAPID [Concomitant]
     Dosage: 10 UNITS (BREAKFAST AND LUNCH)
  5. ACTRAPID [Concomitant]
     Dosage: 20 UNITS (DINNER)
  6. LANTUS [Concomitant]
     Dosage: 40 UNITS, 1X/DAY (DINNER)

REACTIONS (9)
  - ALANINE AMINOTRANSFERASE INCREASED [None]
  - ASPARTATE AMINOTRANSFERASE INCREASED [None]
  - BLOOD CHOLESTEROL INCREASED [None]
  - BLOOD GLUCOSE INCREASED [None]
  - BLOOD KETONE BODY [None]
  - BLOOD TRIGLYCERIDES INCREASED [None]
  - GAMMA-GLUTAMYLTRANSFERASE INCREASED [None]
  - LETHARGY [None]
  - LIVER FUNCTION TEST ABNORMAL [None]
